FAERS Safety Report 9134043 (Version 1)
Quarter: 2013Q1

REPORT INFORMATION
  Report Type: Spontaneous
  Country: US (occurrence: None)
  Receive Date: 20130227
  Receipt Date: 20130227
  Transmission Date: 20140127
  Serious: Yes (Death)
  Sender: FDA-Public Use
  Company Number: None

PATIENT
  Age: 23 Year
  Sex: Female
  Weight: 50 kg

DRUGS (1)
  1. JUNEL 1.5/30 [Suspect]
     Indication: CONTRACEPTION
     Dosage: 1.5 MG-30 MCG DAILY PO
     Route: 048
     Dates: start: 20121030, end: 20130225

REACTIONS (3)
  - Pulmonary embolism [None]
  - Cardiac arrest [None]
  - Pulseless electrical activity [None]
